FAERS Safety Report 8469614-6 (Version None)
Quarter: 2012Q2

REPORT INFORMATION
  Report Type: 
  Country: None (occurrence: None)
  Receive Date: 20120626
  Receipt Date: 20120621
  Transmission Date: 20120825
  Serious: Yes (Other)
  Sender: FDA-Public Use
  Company Number: US-PFIZER INC-2012150179

PATIENT
  Sex: Female
  Weight: 90.703 kg

DRUGS (6)
  1. WELLBUTRIN [Concomitant]
     Dosage: UNK
  2. LYRICA [Suspect]
     Indication: PAIN IN EXTREMITY
  3. METOPROLOL [Concomitant]
     Dosage: UNK
  4. LYRICA [Suspect]
     Indication: FIBROMYALGIA
     Dosage: 150 MG, 3X/DAY
     Route: 048
  5. EFFEXOR [Concomitant]
     Dosage: UNK
  6. LOSARTAN [Concomitant]
     Dosage: UNK

REACTIONS (1)
  - DIABETES MELLITUS [None]
